FAERS Safety Report 5806265-3 (Version None)
Quarter: 2008Q3

REPORT INFORMATION
  Report Type: 
  Country: None (occurrence: None)
  Receive Date: 20080710
  Receipt Date: 20080702
  Transmission Date: 20090109
  Serious: Yes (Other)
  Sender: FDA-Public Use
  Company Number: JP-ABBOTT-08P-087-0460754-00

PATIENT
  Age: 53 Year
  Sex: Female

DRUGS (29)
  1. SEVOFLURANE [Suspect]
     Indication: ANAESTHESIA PROCEDURE
     Route: 055
  2. ASCORBIC ACID [Suspect]
     Indication: DRUG USE FOR UNKNOWN INDICATION
     Route: 042
  3. PROPOFOL [Suspect]
     Indication: SEDATION
     Route: 042
  4. INSULIN [Suspect]
     Indication: DRUG USE FOR UNKNOWN INDICATION
     Route: 042
  5. MIDAZOLAM HCL [Suspect]
     Indication: SEDATION
     Route: 042
  6. KETAMINE HYDROCHLORIDE [Suspect]
     Indication: SEDATION
     Route: 042
  7. FENTANYL CITRATE [Suspect]
     Indication: SEDATION
     Route: 042
  8. NICARDIPINE HYDROCHLORIDE [Suspect]
     Indication: BLOOD PRESSURE MANAGEMENT
     Route: 042
  9. FAMOTIDINE [Suspect]
     Indication: DRUG USE FOR UNKNOWN INDICATION
     Route: 042
  10. FAMOTIDINE [Suspect]
     Route: 048
  11. CEFAZOLIN SODIUM [Suspect]
     Indication: ANTIBIOTIC THERAPY
     Route: 042
  12. CEFAZOLIN SODIUM [Suspect]
     Route: 042
  13. TEICOPLANIN [Suspect]
     Indication: ANTIBIOTIC THERAPY
     Route: 042
  14. VANCOMYCIN HYDROCHLORIDE [Suspect]
     Indication: ANTIBIOTIC THERAPY
     Route: 042
  15. CEFTAZIDIME [Suspect]
     Indication: ANTIBIOTIC THERAPY
     Route: 042
  16. VITAMIN B COMPLEX CAP [Suspect]
     Indication: DRUG USE FOR UNKNOWN INDICATION
     Route: 042
  17. PANTHENOL [Suspect]
     Indication: DRUG USE FOR UNKNOWN INDICATION
     Route: 042
  18. CALCIUM GLUCONATE [Suspect]
     Indication: DRUG USE FOR UNKNOWN INDICATION
     Route: 042
  19. POTASSIUM CHLORIDE [Suspect]
     Indication: DRUG USE FOR UNKNOWN INDICATION
     Route: 042
  20. FUROSEMIDE [Suspect]
     Indication: DIURETIC THERAPY
     Route: 042
  21. POTASSIUM CANRENOATE [Suspect]
     Indication: DIURETIC THERAPY
     Route: 042
  22. BIFIDOBACTERIUM [Suspect]
     Indication: DRUG USE FOR UNKNOWN INDICATION
     Route: 048
  23. NIFEDIPINE [Suspect]
     Indication: BLOOD PRESSURE MANAGEMENT
     Route: 048
  24. POLYMYXIN B SULFATE [Suspect]
     Indication: DRUG USE FOR UNKNOWN INDICATION
     Route: 031
  25. VECURONIUM BROMIDE [Suspect]
     Indication: MUSCLE RELAXANT THERAPY
     Route: 042
  26. ATROPINE SULFATE [Suspect]
     Indication: DRUG USE FOR UNKNOWN INDICATION
     Route: 042
  27. NEOSTIGMINE METILSULFATE [Suspect]
     Indication: DRUG USE FOR UNKNOWN INDICATION
     Route: 042
  28. NITROUS OXIDE W/ OXYGEN [Suspect]
     Indication: DRUG USE FOR UNKNOWN INDICATION
     Route: 055
  29. FAMOTIDINE [Suspect]
     Route: 048

REACTIONS (1)
  - TOXIC EPIDERMAL NECROLYSIS [None]
